FAERS Safety Report 4477956-4 (Version None)
Quarter: 2004Q4

REPORT INFORMATION
  Report Type: 
  Country: None (occurrence: None)
  Receive Date: 20041018
  Receipt Date: 20041013
  Transmission Date: 20050328
  Serious: Yes (Life-Threatening, Hospitalization, Disabling)
  Sender: FDA-Public Use
  Company Number: US-MERCK-0410USA02018

PATIENT
  Age: 69 Year
  Sex: Female

DRUGS (6)
  1. LIPITOR [Concomitant]
     Route: 065
  2. CARDIZEM CD [Concomitant]
     Route: 065
  3. AVAPRO [Concomitant]
     Route: 065
  4. SYNTHROID [Concomitant]
     Route: 065
  5. ACIPHEX [Concomitant]
     Route: 065
  6. VIOXX [Suspect]
     Indication: ARTHRITIS
     Route: 048
     Dates: start: 20010101, end: 20040101

REACTIONS (2)
  - CARDIAC FAILURE CONGESTIVE [None]
  - CHEST PAIN [None]
